FAERS Safety Report 5716208-9 (Version None)
Quarter: 2008Q2

REPORT INFORMATION
  Report Type: 
  Country: None (occurrence: None)
  Receive Date: 20080424
  Receipt Date: 20080416
  Transmission Date: 20081010
  Serious: Yes (Death)
  Sender: FDA-Public Use
  Company Number: US-AVENTIS-200812422US

PATIENT
  Age: 78 Year

DRUGS (4)
  1. GLYBURIDE [Suspect]
     Dosage: DOSE: UNK
     Route: 048
  2. NIFEDIPINE [Suspect]
     Dosage: DOSE: UNK
     Route: 048
  3. CLONIDINE HCL [Suspect]
     Dosage: DOSE: UNK
     Route: 048
  4. UNKNOWN DRUG [Suspect]
     Dosage: DOSE: UNK

REACTIONS (2)
  - COMPLETED SUICIDE [None]
  - INTENTIONAL OVERDOSE [None]
